FAERS Safety Report 4627631-8 (Version None)
Quarter: 2005Q2

REPORT INFORMATION
  Report Type: 
  Country: None (occurrence: None)
  Receive Date: 20050401
  Receipt Date: 20050322
  Transmission Date: 20051028
  Serious: Yes (Hospitalization, Other)
  Sender: FDA-Public Use
  Company Number: 2005047804

PATIENT
  Age: 70 Year
  Sex: Female
  Weight: 44.9061 kg

DRUGS (8)
  1. CELEBREX [Suspect]
     Indication: ARTHRITIS
     Dosage: ORAL
     Route: 048
  2. ALENDRONATE SODIUM [Concomitant]
     Indication: OSTEOPOROSIS
     Dosage: ORAL
     Route: 048
  3. CALCIUM D3 ^STADA^ (CALCIUM, COLECALCIFEROL) [Suspect]
     Indication: MINERAL SUPPLEMENTATION
     Dosage: ORAL
     Route: 048
     Dates: start: 19950101
  4. METOPROLOL TARTRATE [Concomitant]
  5. CLONAZEPAM [Concomitant]
  6. MULTIVITAMINS (ASCORBIC ACID, ERGOCALCIFEROL, FOLIC ACID, NICOTINAMIDE [Concomitant]
  7. B-KOMPLEX ^LECIVA^ (CALCIUM PANTOTHENATE, NICOTINAMIDE, PYRIDOXINE HYD [Concomitant]
  8. TOCOPHEROL (TOCOPHEROL) [Concomitant]

REACTIONS (6)
  - HAEMATEMESIS [None]
  - HEART RATE DECREASED [None]
  - HYPOTENSION [None]
  - LOSS OF CONSCIOUSNESS [None]
  - MELAENA [None]
  - ULCER HAEMORRHAGE [None]
